FAERS Safety Report 25377735 (Version 1)
Quarter: 2025Q2

REPORT INFORMATION
  Report Type: Spontaneous
  Country: TW (occurrence: TW)
  Receive Date: 20250530
  Receipt Date: 20250530
  Transmission Date: 20250717
  Serious: Yes (Disabling, Other)
  Sender: GILEAD
  Company Number: TW-GILEAD-2025-0715013

PATIENT
  Age: 75 Year
  Sex: Female
  Weight: 43 kg

DRUGS (9)
  1. VEMLIDY [Suspect]
     Active Substance: TENOFOVIR ALAFENAMIDE FUMARATE
     Indication: Hepatitis B
     Route: 048
     Dates: start: 20240910
  2. TIOTROPIUM [Concomitant]
     Active Substance: TIOTROPIUM
     Indication: Asthma
     Dosage: 0.01 MG, QD
     Route: 055
  3. APIXABAN [Concomitant]
     Active Substance: APIXABAN
     Indication: Thrombosis
     Route: 048
  4. FORMOTEROL FUMARATE DIHYDRATE [Concomitant]
     Active Substance: FORMOTEROL FUMARATE DIHYDRATE
     Indication: Asthma
     Route: 055
  5. PROPAFENONE HYDROCHLORIDE [Concomitant]
     Active Substance: PROPAFENONE HYDROCHLORIDE
     Indication: Arrhythmia
     Route: 048
  6. LOSARTAN POTASSIUM [Concomitant]
     Active Substance: LOSARTAN POTASSIUM
     Indication: Hypertension
  7. SILYMARIN 100 [Concomitant]
     Indication: Liver disorder
     Route: 048
  8. CLOSTRIDIUM BUTYRICUM POWDER, LIVE [Concomitant]
     Indication: Probiotic therapy
     Route: 048
  9. MAGNESIUM OXIDE E [Concomitant]
     Indication: Faeces soft
     Route: 048

REACTIONS (1)
  - Alopecia [Recovered/Resolved]

NARRATIVE: CASE EVENT DATE: 20241025
